FAERS Safety Report 22296184 (Version 2)
Quarter: 2024Q1

REPORT INFORMATION
  Report Type: Spontaneous
  Country: AU (occurrence: AU)
  Receive Date: 20230508
  Receipt Date: 20240215
  Transmission Date: 20240410
  Serious: Yes (Hospitalization, Other)
  Sender: FDA-Public Use
  Company Number: AU-Ascend Therapeutics US, LLC-2141239

PATIENT
  Sex: Male

DRUGS (3)
  1. ESTROGEL [Suspect]
     Active Substance: ESTRADIOL
     Route: 065
  2. ESTRADIOL [Suspect]
     Active Substance: ESTRADIOL
     Route: 065
  3. CYPROTERONE ACETATE [Suspect]
     Active Substance: CYPROTERONE ACETATE
     Route: 065

REACTIONS (2)
  - Meningioma [Unknown]
  - Off label use [Unknown]
